FAERS Safety Report 8011296 (Version 6)
Quarter: 2013Q1

REPORT INFORMATION
  Report Type: Spontaneous
  Country: US (occurrence: US)
  Receive Date: 20110627
  Receipt Date: 20130329
  Transmission Date: 20140127
  Serious: Yes (Hospitalization, Disabling, Other)
  Sender: FDA-Public Use
  Company Number: US-ELI_LILLY_AND_COMPANY-US201106004731

PATIENT
  Age: 66 None
  Sex: Female
  Weight: 65 kg

DRUGS (20)
  1. FORTEO [Suspect]
     Indication: OSTEOPOROSIS
     Dosage: 20 UG, QD
     Route: 065
     Dates: start: 20110217
  2. FORTEO [Suspect]
     Dosage: 20 UG, QD
     Route: 065
  3. FORTEO [Suspect]
     Dosage: 20 UG, QD
     Route: 065
  4. FORTEO [Suspect]
     Dosage: 20 UG, QD
     Route: 065
  5. FORTEO [Suspect]
     Dosage: 20 UG, QD
     Route: 065
     Dates: end: 20130218
  6. CALCIUM [Concomitant]
  7. RELAFEN [Concomitant]
  8. PLAQUENIL [Concomitant]
  9. PREDNISONE [Concomitant]
     Dosage: 8 MG, QD
  10. FOLIC ACID [Concomitant]
  11. PROZAC [Concomitant]
  12. ACIPHEX [Concomitant]
  13. MIRAPEX [Concomitant]
     Dosage: UNK, QID
  14. TRAVATAN [Concomitant]
  15. FELSOL                             /00117801/ [Concomitant]
  16. HUMIRA [Concomitant]
  17. METHOTREXATE [Concomitant]
  18. IRON [Concomitant]
  19. CENTRUM [Concomitant]
     Dosage: UNK, QD
  20. VITAMIN D [Concomitant]
     Dosage: UNK

REACTIONS (21)
  - Post procedural complication [Unknown]
  - Device dislocation [Unknown]
  - Nerve injury [Unknown]
  - Hip fracture [Unknown]
  - Pain in extremity [Not Recovered/Not Resolved]
  - Arthropathy [Unknown]
  - Arthropathy [Unknown]
  - Movement disorder [Recovering/Resolving]
  - Pain [Recovering/Resolving]
  - Fear [Unknown]
  - Groin pain [Unknown]
  - Feeling abnormal [Unknown]
  - Back pain [Unknown]
  - Bone disorder [Unknown]
  - Musculoskeletal pain [Unknown]
  - Arthritis [Unknown]
  - Arthralgia [Unknown]
  - Bone density decreased [Unknown]
  - Pain in extremity [Unknown]
  - Hand deformity [Unknown]
  - Body height decreased [Unknown]
